FAERS Safety Report 5332705-2 (Version None)
Quarter: 2007Q2

REPORT INFORMATION
  Report Type: 
  Country: None (occurrence: None)
  Receive Date: 20070523
  Receipt Date: 20070511
  Transmission Date: 20071010
  Serious: Yes (Other)
  Sender: FDA-Public Use
  Company Number: US-PFIZER INC-2007039001

PATIENT
  Sex: Male
  Weight: 89.09 kg

DRUGS (6)
  1. CHANTIX [Suspect]
     Indication: SMOKING CESSATION THERAPY
  2. SEROQUEL [Interacting]
     Indication: BIPOLAR DISORDER
  3. TRILEPTAL [Interacting]
     Indication: BIPOLAR DISORDER
  4. LEXAPRO [Concomitant]
     Indication: BIPOLAR DISORDER
  5. KLONOPIN [Concomitant]
     Indication: BIPOLAR DISORDER
  6. CRESTOR [Concomitant]
     Indication: BLOOD CHOLESTEROL

REACTIONS (5)
  - ABNORMAL DREAMS [None]
  - BIPOLAR DISORDER [None]
  - COLD SWEAT [None]
  - DRUG INTERACTION [None]
  - HYPOAESTHESIA [None]
